FAERS Safety Report 15639613 (Version 6)
Quarter: 2019Q2

REPORT INFORMATION
  Report Type: Report from Study
  Country: NO (occurrence: NO)
  Receive Date: 20181120
  Receipt Date: 20190401
  Transmission Date: 20190711
  Serious: Yes (Hospitalization)
  Sender: FDA-Public Use
  Company Number: NO-ROCHE-2214517

PATIENT
  Age: 67 Year
  Sex: Male
  Weight: 76.8 kg

DRUGS (11)
  1. DAPSON [Concomitant]
     Active Substance: DAPSONE
     Indication: PROPHYLAXIS
     Route: 048
     Dates: start: 20171227, end: 20181022
  2. COBIMETINIB. [Suspect]
     Active Substance: COBIMETINIB
     Indication: PLASMA CELL MYELOMA
  3. CALCIGRAN FORTE [Concomitant]
     Active Substance: CALCIUM CARBONATE\CHOLECALCIFEROL
     Indication: PROPHYLAXIS
     Route: 048
     Dates: start: 20180903
  4. ZOMETA [Concomitant]
     Active Substance: ZOLEDRONIC ACID
     Indication: PROPHYLAXIS
     Route: 042
     Dates: start: 20180906
  5. VALTREX [Concomitant]
     Active Substance: VALACYCLOVIR HYDROCHLORIDE
     Indication: PROPHYLAXIS
     Route: 048
     Dates: start: 20181001, end: 20181022
  6. LOPERAMID [Concomitant]
     Active Substance: LOPERAMIDE
     Indication: DIARRHOEA
     Route: 048
     Dates: start: 20181022
  7. COBIMETINIB. [Suspect]
     Active Substance: COBIMETINIB
     Indication: PLASMA CELL MYELOMA RECURRENT
     Dosage: DATE OF MOST RECENT DOSE (40 MG) OF COBIMETINIB PRIOR TO ADVERSE EVENT (AE) AND SAE (SERIOUS ADVERSE
     Route: 048
     Dates: start: 20181022
  8. VALTREX [Concomitant]
     Active Substance: VALACYCLOVIR HYDROCHLORIDE
     Indication: HERPES ZOSTER
  9. ZOFRAN [Concomitant]
     Active Substance: ONDANSETRON HYDROCHLORIDE
     Indication: NAUSEA
     Route: 048
     Dates: start: 20181022
  10. ATEZOLIZUMAB. [Suspect]
     Active Substance: ATEZOLIZUMAB
     Indication: PLASMA CELL MYELOMA RECURRENT
     Dosage: THIS WAS ALSO MOST RECENT DOSE OF ATEZOLIZUMAB (840 MG) PRIOR TO SEPTICEMIA-STAFYLOCOCCUS HOMINIS: 0
     Route: 042
     Dates: start: 20190107
  11. LIPITOR [Concomitant]
     Active Substance: ATORVASTATIN CALCIUM
     Indication: HYPERCHOLESTEROLAEMIA
     Route: 048
     Dates: start: 20100923

REACTIONS (3)
  - Staphylococcal sepsis [Recovered/Resolved]
  - Pneumonia pneumococcal [Recovered/Resolved]
  - Haemophilus sepsis [Recovered/Resolved]

NARRATIVE: CASE EVENT DATE: 20181111
